FAERS Safety Report 14328852 (Version 1)
Quarter: 2017Q4

REPORT INFORMATION
  Report Type: Spontaneous
  Country: KR (occurrence: KR)
  Receive Date: 20171227
  Receipt Date: 20171227
  Transmission Date: 20180321
  Serious: Yes (Other)
  Sender: FDA-Public Use
  Company Number: KR-GALDERMA-KR17013329

PATIENT
  Age: 68 Year
  Sex: Male

DRUGS (2)
  1. ROZEX (METRONIDAZOLE) [Suspect]
     Active Substance: METRONIDAZOLE
     Indication: ROSACEA
     Dosage: 0,75%
     Route: 061
  2. ROZEX (METRONIDAZOLE) [Suspect]
     Active Substance: METRONIDAZOLE
     Indication: EYE IRRITATION

REACTIONS (3)
  - Off label use [Recovered/Resolved]
  - Xerophthalmia [Unknown]
  - Intentional product use issue [Recovered/Resolved]
